FAERS Safety Report 10384444 (Version 1)
Quarter: 2014Q1

REPORT INFORMATION
  Report Type: Spontaneous
  Country: US (occurrence: None)
  Receive Date: 20140306
  Receipt Date: 20140306
  Transmission Date: 20141002
  Serious: Yes (Other)
  Sender: FDA-Public Use
  Company Number: 163-21880-13081935

PATIENT
  Age: 56 Year
  Sex: Male

DRUGS (11)
  1. REVLIMIB (LENALIDOMIDE) (25 MILLIGRAM, CAPSULES) [Suspect]
     Indication: PLASMA CELL MYELOMA
     Route: 048
     Dates: start: 200908
  2. ATIVAN (LORAZEPAM) [Concomitant]
  3. DRONABINOL [Concomitant]
  4. K-DUR (POTASSIUM CHLORIDE) [Concomitant]
  5. CLONAZEPAM [Concomitant]
  6. DEXAMETHASONE [Concomitant]
  7. LORAZEPAM [Concomitant]
  8. PROAIR HFA (SALBUTAMOL SULFATE) (INHALANT) [Concomitant]
  9. FLOVENT (FLUTICASONE PROPIONATE) [Concomitant]
  10. CYCLOBENZAPRINE [Concomitant]
  11. HYDROCODONE/APAP (VICODIN) [Concomitant]

REACTIONS (2)
  - Prostatic specific antigen increased [None]
  - Prostate infection [None]
